FAERS Safety Report 6394274-8 (Version None)
Quarter: 2009Q4

REPORT INFORMATION
  Report Type: 
  Country: None (occurrence: None)
  Receive Date: 20091008
  Receipt Date: 20090928
  Transmission Date: 20100525
  Serious: Yes (Hospitalization, Other)
  Sender: FDA-Public Use
  Company Number: AT-ELI_LILLY_AND_COMPANY-AT200909006872

PATIENT
  Age: 52 Year
  Sex: Male

DRUGS (42)
  1. ZYPREXA [Suspect]
     Dosage: UNK UNK, DAILY (1/D)
     Dates: start: 20090103, end: 20090116
  2. ZYPREXA [Suspect]
     Dosage: 20 MG, DAILY (1/D)
     Dates: start: 20090117, end: 20090121
  3. ZYPREXA [Suspect]
     Dosage: 30 MG, DAILY (1/D)
     Dates: start: 20090122, end: 20090211
  4. ZYPREXA [Suspect]
     Dosage: 40 MG, DAILY (1/D)
     Dates: start: 20090212, end: 20090329
  5. ZYPREXA [Suspect]
     Dosage: 30 MG, DAILY (1/D)
     Dates: start: 20090330, end: 20090401
  6. ZYPREXA [Suspect]
     Dosage: 25 MG, DAILY (1/D)
     Dates: start: 20090402
  7. ZYPREXA [Suspect]
     Dosage: 20 MG, UNK
     Dates: start: 20090101, end: 20090101
  8. ZYPREXA [Suspect]
     Dosage: 10 MG, UNK
     Dates: start: 20090101
  9. CIPRALEX [Concomitant]
     Dosage: 5 MG, UNK
     Dates: start: 20090117, end: 20090121
  10. CIPRALEX [Concomitant]
     Dosage: 10 MG, UNK
     Dates: start: 20090122, end: 20090201
  11. CIPRALEX [Concomitant]
     Dosage: 20 MG, UNK
     Dates: start: 20090202, end: 20090317
  12. CIPRALEX [Concomitant]
     Dosage: 30 MG, UNK
     Dates: start: 20090318
  13. DOMINAL FORTE [Concomitant]
     Dosage: 80 MG, UNK
     Dates: start: 20090126, end: 20090129
  14. DOMINAL FORTE [Concomitant]
     Dosage: 160 MG, UNK
     Dates: start: 20090130, end: 20090203
  15. DOMINAL FORTE [Concomitant]
     Dosage: 240 MG, UNK
     Dates: start: 20090204, end: 20090315
  16. ABILIFY [Concomitant]
     Dosage: 5 MG, UNK
     Dates: start: 20090204, end: 20090208
  17. ABILIFY [Concomitant]
     Dosage: 10 MG, UNK
     Dates: start: 20090209, end: 20090212
  18. SEROQUEL [Concomitant]
     Dosage: 100 MG, UNK
     Dates: start: 20090219, end: 20090223
  19. SEROQUEL [Concomitant]
     Dosage: 150 MG, UNK
     Dates: start: 20090224, end: 20090224
  20. SEROQUEL [Concomitant]
     Dosage: 200 MG, UNK
     Dates: start: 20090225, end: 20090304
  21. SEROQUEL [Concomitant]
     Dosage: 300 MG, UNK
     Dates: start: 20090305, end: 20090324
  22. SEROQUEL [Concomitant]
     Dosage: 250 MG, UNK
     Dates: start: 20090325, end: 20090325
  23. SEROQUEL [Concomitant]
     Dosage: 200 MG, UNK
     Dates: start: 20090326
  24. NOZINAN [Concomitant]
     Dosage: 50 MG, UNK
     Dates: start: 20090310, end: 20090315
  25. NOZINAN [Concomitant]
     Dosage: 100 MG, UNK
     Dates: start: 20090316
  26. RISPERDAL [Concomitant]
     Dosage: 1 MG, UNK
     Dates: start: 20090324, end: 20090324
  27. RISPERDAL [Concomitant]
     Dosage: 2 MG, UNK
     Dates: start: 20090325, end: 20090330
  28. RISPERDAL [Concomitant]
     Dosage: 3 MG, UNK
     Dates: start: 20090331, end: 20090408
  29. RISPERDAL [Concomitant]
     Dosage: 4 MG, UNK
     Dates: start: 20090409
  30. TEMESTA [Concomitant]
     Dosage: 3.75 MG, UNK
     Dates: start: 20090116, end: 20090116
  31. TEMESTA [Concomitant]
     Dosage: 6.75 MG, UNK
     Dates: start: 20090117, end: 20090119
  32. TEMESTA [Concomitant]
     Dosage: 5 MG, UNK
     Dates: start: 20090120, end: 20090128
  33. TEMESTA [Concomitant]
     Dosage: 3.75 MG, UNK
     Dates: start: 20090129, end: 20090204
  34. TEMESTA [Concomitant]
     Dosage: 2.5 MG, UNK
     Dates: start: 20090205, end: 20090210
  35. TEMESTA [Concomitant]
     Dosage: 3.75 MG, UNK
     Dates: start: 20090211, end: 20090211
  36. TEMESTA [Concomitant]
     Dosage: 5 MG, UNK
     Dates: start: 20090212, end: 20090217
  37. TEMESTA [Concomitant]
     Dosage: 3.75 MG, UNK
     Dates: start: 20090218, end: 20090218
  38. TEMESTA [Concomitant]
     Dosage: 3 MG, UNK
     Dates: start: 20090219, end: 20090219
  39. TEMESTA [Concomitant]
     Dosage: 2.5 MG, UNK
     Dates: start: 20090220, end: 20090222
  40. TEMESTA [Concomitant]
     Dosage: 2 MG, UNK
     Dates: start: 20090223, end: 20090225
  41. TEMESTA [Concomitant]
     Dosage: 1 MG, UNK
     Dates: start: 20090226, end: 20090303
  42. TEMESTA [Concomitant]
     Dosage: 0.5 MG, UNK
     Dates: start: 20090304, end: 20090306

REACTIONS (6)
  - BLOOD CHOLESTEROL INCREASED [None]
  - BLOOD TRIGLYCERIDES INCREASED [None]
  - C-REACTIVE PROTEIN INCREASED [None]
  - HOSPITALISATION [None]
  - PSYCHOTIC DISORDER [None]
  - WEIGHT INCREASED [None]
